FAERS Safety Report 12791189 (Version 1)
Quarter: 2016Q3

REPORT INFORMATION
  Report Type: Spontaneous
  Country: US (occurrence: US)
  Receive Date: 20160928
  Receipt Date: 20160928
  Transmission Date: 20161109
  Serious: Yes (Disabling)
  Sender: FDA-Public Use
  Company Number: None

PATIENT
  Age: 32 Year
  Sex: Female
  Weight: 75.15 kg

DRUGS (3)
  1. CBD OILS [Concomitant]
  2. DOXYCYCLINE HYCLATE. [Suspect]
     Active Substance: DOXYCYCLINE HYCLATE
     Indication: BACTERIAL VAGINOSIS
     Dosage: OTHER TWICE A DAY ORAL
     Route: 048
     Dates: start: 20160901, end: 20160907
  3. CHOCHLEAR IMPLANT [Concomitant]

REACTIONS (7)
  - Depression [None]
  - Vomiting [None]
  - Psoriasis [None]
  - Pruritus [None]
  - Oral discomfort [None]
  - Abdominal pain upper [None]
  - Rash [None]

NARRATIVE: CASE EVENT DATE: 20160905
